FAERS Safety Report 9478231 (Version 1)
Quarter: 2013Q3

REPORT INFORMATION
  Report Type: Spontaneous
  Country: SZ (occurrence: None)
  Receive Date: 20130807
  Receipt Date: 20130807
  Transmission Date: 20140515
  Serious: Yes (Hospitalization, Other)
  Sender: FDA-Public Use
  Company Number: 2013037123

PATIENT
  Age: 52 Year
  Sex: Female

DRUGS (4)
  1. PRIVIGEN [Suspect]
     Indication: POLYMYOSITIS
     Dates: start: 20130606, end: 20130610
  2. PREDNISON (PREDNISONE) [Concomitant]
  3. BELOC (METOPROLOL TARTRATE) [Concomitant]
  4. PANTOZOL (PANTOPRAZOLE SODIUM) [Concomitant]

REACTIONS (3)
  - Haemolytic anaemia [None]
  - Thrombocytopenia [None]
  - Off label use [None]
